FAERS Safety Report 16661043 (Version 1)
Quarter: 2019Q3

REPORT INFORMATION
  Report Type: Other
  Country: US (occurrence: US)
  Receive Date: 20190802
  Receipt Date: 20190802
  Transmission Date: 20191004
  Serious: Yes (Other)
  Sender: FDA-Public Use
  Company Number: US-TARO-2019TAR00504

PATIENT
  Sex: Male
  Weight: 56.69 kg

DRUGS (7)
  1. PHENYTOIN SODIUM EXTENDED [Suspect]
     Active Substance: PHENYTOIN SODIUM
     Indication: EPILEPSY
     Dosage: 100 MG, 3X/DAY
     Route: 048
     Dates: start: 201609
  2. PHENYTOIN SODIUM EXTENDED [Suspect]
     Active Substance: PHENYTOIN SODIUM
     Dosage: 100 MG, 3X/DAY
     Route: 048
     Dates: start: 201803, end: 2018
  3. PHENYTOIN SODIUM EXTENDED [Suspect]
     Active Substance: PHENYTOIN SODIUM
     Dosage: 100 MG, 2X/DAY
     Route: 048
     Dates: start: 2018
  4. TEGRETOL [Concomitant]
     Active Substance: CARBAMAZEPINE
     Dosage: 100 MG, 2X/DAY
  5. NEURONTIN [Concomitant]
     Active Substance: GABAPENTIN
     Dosage: 300 MG, 1X/DAY AT NIGHT TIME
  6. PHENYTOIN SODIUM EXTENDED [Suspect]
     Active Substance: PHENYTOIN SODIUM
     Indication: SEIZURE
     Dosage: 100 MG, 1X/DAY
     Route: 048
  7. PHENYTOIN SODIUM EXTENDED [Suspect]
     Active Substance: PHENYTOIN SODIUM
     Dosage: 100 MG, 2X/DAY
     Route: 048

REACTIONS (13)
  - Sensory loss [Recovering/Resolving]
  - Intentional underdose [Recovered/Resolved]
  - Pain [Recovering/Resolving]
  - Unevaluable event [Recovered/Resolved]
  - Hypoaesthesia [Recovering/Resolving]
  - Feeling abnormal [Recovering/Resolving]
  - Imprisonment [Not Recovered/Not Resolved]
  - Product dose omission [Recovered/Resolved]
  - Balance disorder [Recovering/Resolving]
  - Fall [Recovered/Resolved]
  - Gait disturbance [Recovering/Resolving]
  - Toxicity to various agents [Recovered/Resolved]
  - Anticonvulsant drug level above therapeutic [Recovered/Resolved]

NARRATIVE: CASE EVENT DATE: 2018
